FAERS Safety Report 5574222-0 (Version None)
Quarter: 2007Q4

REPORT INFORMATION
  Report Type: 
  Country: None (occurrence: None)
  Receive Date: 20071227
  Receipt Date: 20071218
  Transmission Date: 20080405
  Serious: Yes (Death, Hospitalization, Other)
  Sender: FDA-Public Use
  Company Number: JP-JNJFOC-20070201868

PATIENT
  Sex: Female
  Weight: 52 kg

DRUGS (33)
  1. REMICADE [Suspect]
     Route: 042
  2. REMICADE [Suspect]
     Dosage: 13 INFUSIONS ON UNSPECIFIED DATES (INFUSIONS 6-18).
     Route: 042
  3. REMICADE [Suspect]
     Dosage: 13 INFUSIONS ON UNSPECIFIED DATES (INFUSIONS 6-18).
     Route: 042
  4. REMICADE [Suspect]
     Dosage: 13 INFUSIONS ON UNSPECIFIED DATES (INFUSIONS 6-18).
     Route: 042
  5. REMICADE [Suspect]
     Dosage: 13 INFUSIONS ON UNSPECIFIED DATES (INFUSIONS 6-18).
     Route: 042
  6. REMICADE [Suspect]
     Dosage: 13 INFUSIONS ON UNSPECIFIED DATES (INFUSIONS 6-18).
     Route: 042
  7. REMICADE [Suspect]
     Dosage: 13 INFUSIONS ON UNSPECIFIED DATES (INFUSIONS 6-18).
     Route: 042
  8. REMICADE [Suspect]
     Dosage: 13 INFUSIONS ON UNSPECIFIED DATES (INFUSIONS 6-18).
     Route: 042
  9. REMICADE [Suspect]
     Dosage: 13 INFUSIONS ON UNSPECIFIED DATES (INFUSIONS 6-18).
     Route: 042
  10. REMICADE [Suspect]
     Dosage: 13 INFUSIONS ON UNSPECIFIED DATES (INFUSIONS 6-18).
     Route: 042
  11. REMICADE [Suspect]
     Dosage: 13 INFUSIONS ON UNSPECIFIED DATES (INFUSIONS 6-18).
     Route: 042
  12. REMICADE [Suspect]
     Route: 042
  13. REMICADE [Suspect]
     Dosage: 13 INFUSIONS ON UNSPECIFIED DATES (INFUSIONS 6-18).
     Route: 042
  14. REMICADE [Suspect]
     Route: 042
  15. REMICADE [Suspect]
     Route: 042
  16. REMICADE [Suspect]
     Route: 042
  17. REMICADE [Suspect]
     Route: 042
  18. REMICADE [Suspect]
     Indication: RHEUMATOID ARTHRITIS
     Route: 042
  19. RHEUMATREX [Suspect]
     Route: 048
  20. RHEUMATREX [Suspect]
     Route: 048
  21. RHEUMATREX [Suspect]
     Indication: RHEUMATOID ARTHRITIS
     Route: 048
  22. PREDNISOLONE [Concomitant]
     Indication: RHEUMATOID ARTHRITIS
     Route: 048
  23. RINDERON [Concomitant]
     Indication: RHEUMATOID ARTHRITIS
     Route: 030
  24. VOLTAREN [Concomitant]
     Indication: RHEUMATOID ARTHRITIS
     Route: 048
  25. INDOMETHACIN [Concomitant]
     Indication: RHEUMATOID ARTHRITIS
     Route: 054
  26. ADOFEED [Concomitant]
     Indication: RHEUMATOID ARTHRITIS
  27. OMNICAIN [Concomitant]
     Route: 030
  28. GASTER [Concomitant]
     Indication: GASTRITIS PROPHYLAXIS
     Route: 048
  29. MARZULENE-S [Concomitant]
     Indication: GASTRITIS PROPHYLAXIS
     Route: 048
  30. JUVELA NICOTINATE [Concomitant]
     Route: 048
  31. FOLIAMIN [Concomitant]
     Indication: PROPHYLAXIS
     Route: 048
  32. BONALON [Concomitant]
     Indication: RHEUMATOID ARTHRITIS
     Route: 048
  33. TAKEPRON [Concomitant]
     Indication: RHEUMATOID ARTHRITIS
     Route: 048

REACTIONS (4)
  - HEPATIC ENCEPHALOPATHY [None]
  - HEPATIC FAILURE [None]
  - METASTASES TO LIVER [None]
  - PANCREATIC CARCINOMA METASTATIC [None]
